FAERS Safety Report 11569365 (Version 1)
Quarter: 2015Q3

REPORT INFORMATION
  Report Type: Spontaneous
  Country: US (occurrence: None)
  Receive Date: 20150928
  Receipt Date: 20150928
  Transmission Date: 20151125
  Serious: Yes (Disabling, Other)
  Sender: FDA-Public Use
  Company Number: None

PATIENT
  Age: 42 Year
  Sex: Female
  Weight: 61.24 kg

DRUGS (9)
  1. VITAMIN C [Concomitant]
     Active Substance: ASCORBIC ACID
  2. ACYCLOVIR. [Concomitant]
     Active Substance: ACYCLOVIR
  3. KENALOG [Suspect]
     Active Substance: TRIAMCINOLONE ACETONIDE
     Indication: HYPERSENSITIVITY
     Dosage: 1 1/2 CC
     Route: 030
  4. AMBIEN [Concomitant]
     Active Substance: ZOLPIDEM TARTRATE
  5. WELLBUTRIN [Concomitant]
     Active Substance: BUPROPION HYDROCHLORIDE
  6. VITAMIN K [Concomitant]
     Active Substance: PHYTONADIONE
  7. LORATADINE. [Concomitant]
     Active Substance: LORATADINE
  8. ATORVASTATIN [Concomitant]
     Active Substance: ATORVASTATIN
  9. NAPROXEN. [Concomitant]
     Active Substance: NAPROXEN

REACTIONS (2)
  - Injection site pain [None]
  - Injection site induration [None]

NARRATIVE: CASE EVENT DATE: 20150501
